FAERS Safety Report 26007472 (Version 1)
Quarter: 2025Q4

REPORT INFORMATION
  Report Type: Spontaneous
  Country: IR (occurrence: IR)
  Receive Date: 20251106
  Receipt Date: 20251106
  Transmission Date: 20260117
  Serious: Yes (Life-Threatening, Hospitalization, Other)
  Sender: SANOFI AVENTIS
  Company Number: IR-MLMSERVICE-20251027-PI687680-00175-1

PATIENT
  Age: 42 Year
  Sex: Female

DRUGS (3)
  1. HEPARIN [Suspect]
     Active Substance: HEPARIN SODIUM
     Indication: Anticoagulant therapy
     Dosage: 5000.000[IU] INTERNATION UNIT(S) Q12H
     Route: 058
  2. ENOXAPARIN SODIUM [Suspect]
     Active Substance: ENOXAPARIN SODIUM
     Indication: Anticoagulant therapy
     Dosage: 60.000MG QD
     Route: 058
  3. CIPROFLOXACIN [Concomitant]
     Active Substance: CIPROFLOXACIN
     Indication: Urinary tract infection
     Dosage: 500.000MG Q12H
     Route: 048

REACTIONS (4)
  - Splenic haematoma [Recovered/Resolved]
  - Shock haemorrhagic [Recovered/Resolved]
  - Spontaneous splenic rupture [Recovered/Resolved]
  - Exposure during pregnancy [Unknown]
